FAERS Safety Report 21468677 (Version 1)
Quarter: 2022Q4

REPORT INFORMATION
  Report Type: Report from Study
  Country: FR (occurrence: FR)
  Receive Date: 20221018
  Receipt Date: 20221018
  Transmission Date: 20230113
  Serious: Yes (Other)
  Sender: FDA-Public Use
  Company Number: FR-CELLTRION HEALTHCARE HUNGARY KFT-2019FR023551

PATIENT

DRUGS (3)
  1. REMICADE [Suspect]
     Active Substance: INFLIXIMAB
     Indication: Crohn^s disease
     Dosage: MAINTENANCE TREATMENT
     Route: 042
  2. HYDROCORTISONE [Concomitant]
     Active Substance: HYDROCORTISONE
     Indication: Premedication
  3. DEXCHLORPHENIRAMINE [Concomitant]
     Active Substance: DEXCHLORPHENIRAMINE
     Indication: Premedication

REACTIONS (18)
  - Infusion related reaction [Unknown]
  - Infestation [Unknown]
  - Drug intolerance [Unknown]
  - Hepatobiliary disease [Unknown]
  - Gastrointestinal disorder [Unknown]
  - Nervous system disorder [Unknown]
  - Cardiac disorder [Unknown]
  - Immune system disorder [Unknown]
  - Mediastinal disorder [Unknown]
  - Connective tissue disorder [Unknown]
  - Renal disorder [Unknown]
  - Adverse event [Unknown]
  - Skin disorder [Unknown]
  - Musculoskeletal disorder [Unknown]
  - Maternal exposure during pregnancy [Unknown]
  - Drug specific antibody present [Unknown]
  - Drug ineffective [Unknown]
  - Off label use [Unknown]
